FAERS Safety Report 23164076 (Version 2)
Quarter: 2023Q4

REPORT INFORMATION
  Report Type: Report from Study
  Country: IT (occurrence: IT)
  Receive Date: 20231109
  Receipt Date: 20231122
  Transmission Date: 20240110
  Serious: Yes (Other)
  Sender: FDA-Public Use
  Company Number: IT-TEVA-2023-IT-2942836

PATIENT
  Age: 12 Year
  Sex: Male
  Weight: 40 kg

DRUGS (5)
  1. METHOTREXATE [Suspect]
     Active Substance: METHOTREXATE
     Indication: Osteosarcoma
     Dosage: 12 G/M2, 44% OF THE TOTAL DOSE ADMINISTERED, INFUSED IN 3.5 HOURS, HIGH DOSE, ROUTE: {INFUSION}
     Route: 050
  2. METHOTREXATE [Suspect]
     Active Substance: METHOTREXATE
     Dosage: REDUCED DOSE OF 8 G/M2, 33% OF THE TOTAL DOSE ADMINISTERED, ROUTE: {INFUSION}
     Route: 050
  3. AMLODIPINE [Concomitant]
     Active Substance: AMLODIPINE BESYLATE
     Indication: Hypertension
     Route: 065
  4. ADRIAMYCIN [Concomitant]
     Active Substance: DOXORUBICIN HYDROCHLORIDE
     Indication: Osteosarcoma
     Route: 065
  5. CISPLATIN [Concomitant]
     Active Substance: CISPLATIN
     Indication: Osteosarcoma
     Route: 065

REACTIONS (9)
  - Drug hypersensitivity [Recovered/Resolved]
  - Toxicity to various agents [Unknown]
  - Hypertension [Recovering/Resolving]
  - Acute kidney injury [Recovered/Resolved]
  - Hyperaemia [Recovered/Resolved]
  - Glycogen storage disease type II [Recovered/Resolved]
  - Pruritus [Recovered/Resolved]
  - Diarrhoea [Recovered/Resolved]
  - Vomiting [Recovered/Resolved]
